FAERS Safety Report 17257732 (Version 7)
Quarter: 2024Q3

REPORT INFORMATION
  Report Type: Spontaneous
  Country: BE (occurrence: BE)
  Receive Date: 20200110
  Receipt Date: 20240802
  Transmission Date: 20241017
  Serious: Yes (Hospitalization, Other)
  Sender: MYLAN
  Company Number: BE-TAKEDA-2019TEU011967

PATIENT
  Age: 54 Year
  Sex: Male

DRUGS (10)
  1. PANTOPRAZOLE [Suspect]
     Active Substance: PANTOPRAZOLE
     Indication: Oesophageal disorder
     Dosage: 160 MG, QD (80 MG, BID)
     Route: 065
  2. PANTOPRAZOLE [Suspect]
     Active Substance: PANTOPRAZOLE
     Dosage: UNK
     Route: 065
  3. INSULIN NOS [Concomitant]
     Active Substance: INSULIN NOS
     Indication: Insulin-requiring type 2 diabetes mellitus
     Dosage: UNK
     Route: 065
  4. FUROSEMIDE [Concomitant]
     Active Substance: FUROSEMIDE
     Indication: Product used for unknown indication
     Dosage: UNK
     Route: 065
  5. BARNIDIPINE [Concomitant]
     Active Substance: BARNIDIPINE
     Indication: Dilated cardiomyopathy
     Dosage: UNK
     Route: 065
  6. BISOPROLOL [Concomitant]
     Active Substance: BISOPROLOL\BISOPROLOL FUMARATE
     Indication: Dilated cardiomyopathy
     Dosage: UNK
     Route: 065
  7. ASPIRIN [Concomitant]
     Active Substance: ASPIRIN
     Indication: Product used for unknown indication
     Dosage: UNK
     Route: 065
  8. METFORMIN [Concomitant]
     Active Substance: METFORMIN HYDROCHLORIDE
     Indication: Insulin-requiring type 2 diabetes mellitus
     Dosage: UNK
     Route: 065
  9. ROSUVASTATIN [Concomitant]
     Active Substance: ROSUVASTATIN\ROSUVASTATIN CALCIUM
     Indication: Product used for unknown indication
     Dosage: UNK
     Route: 065
  10. LISINOPRIL [Concomitant]
     Active Substance: LISINOPRIL
     Indication: Dilated cardiomyopathy
     Dosage: UNK
     Route: 065

REACTIONS (6)
  - Acute kidney injury [Unknown]
  - Hypomagnesaemia [Recovered/Resolved]
  - Hypocalcaemia [Recovered/Resolved]
  - Paraesthesia oral [Unknown]
  - Myalgia [Unknown]
  - Vomiting [Unknown]

NARRATIVE: CASE EVENT DATE: 20131001
